FAERS Safety Report 17944800 (Version 2)
Quarter: 2025Q3

REPORT INFORMATION
  Report Type: Spontaneous
  Country: EU (occurrence: EU)
  Receive Date: 20200626
  Receipt Date: 20250828
  Transmission Date: 20251020
  Serious: Yes (Hospitalization, Other)
  Sender: AUROBINDO
  Company Number: EU-EMA-20130207-VGUGNANIP-213328714

PATIENT
  Age: 32 Year
  Sex: Male

DRUGS (9)
  1. QUETIAPINE [Suspect]
     Active Substance: QUETIAPINE
     Indication: Product used for unknown indication
     Route: 065
  2. OLANZAPINE [Suspect]
     Active Substance: OLANZAPINE
     Indication: Product used for unknown indication
     Route: 065
  3. HALOPERIDOL [Suspect]
     Active Substance: HALOPERIDOL
     Indication: Aggression
     Route: 030
  4. HALOPERIDOL [Suspect]
     Active Substance: HALOPERIDOL
     Route: 030
  5. HALOPERIDOL [Suspect]
     Active Substance: HALOPERIDOL
     Route: 030
  6. HALOPERIDOL [Suspect]
     Active Substance: HALOPERIDOL
     Route: 065
  7. HALOPERIDOL [Suspect]
     Active Substance: HALOPERIDOL
     Indication: Sleep disorder
     Route: 065
  8. LEVOMEPROMAZINE [Suspect]
     Active Substance: LEVOMEPROMAZINE
     Indication: Product used for unknown indication
     Route: 030
  9. OXAZEPAM [Suspect]
     Active Substance: OXAZEPAM
     Indication: Product used for unknown indication
     Route: 065

REACTIONS (24)
  - Abdominal pain [Recovered/Resolved]
  - Cognitive disorder [Recovering/Resolving]
  - Abdominal distension [Recovered/Resolved]
  - Tachypnoea [Recovering/Resolving]
  - Hypotension [Recovered/Resolved]
  - Condition aggravated [Recovering/Resolving]
  - Muscle rigidity [Recovering/Resolving]
  - Haematochezia [Recovering/Resolving]
  - Abnormal behaviour [Recovering/Resolving]
  - Mutism [Unknown]
  - Aggression [Recovering/Resolving]
  - Tachycardia [Recovered/Resolved]
  - Tremor [Recovering/Resolving]
  - Pyrexia [Recovering/Resolving]
  - Diarrhoea haemorrhagic [Recovered/Resolved]
  - Hyperhidrosis [Recovering/Resolving]
  - Neuroleptic malignant syndrome [Recovered/Resolved]
  - Colitis ischaemic [Recovered/Resolved]
  - Dyskinesia [Recovering/Resolving]
  - Psychomotor hyperactivity [Recovering/Resolving]
  - Sleep disorder [Recovering/Resolving]
  - Transaminases increased [Recovering/Resolving]
  - Blood creatine phosphokinase increased [Recovering/Resolving]
  - Apathy [Recovering/Resolving]
